FAERS Safety Report 14292048 (Version 1)
Quarter: 2017Q4

REPORT INFORMATION
  Report Type: Spontaneous
  Country: DE (occurrence: DE)
  Receive Date: 20171215
  Receipt Date: 20171215
  Transmission Date: 20180321
  Serious: Yes (Other)
  Sender: FDA-Public Use
  Company Number: DE-OTSUKA-19795590

PATIENT
  Age: 59 Year
  Sex: Female

DRUGS (3)
  1. L-THYROXINE [Concomitant]
     Active Substance: LEVOTHYROXINE
     Dosage: 100 ?G, UNK
     Route: 048
  2. ABILIFY [Suspect]
     Active Substance: ARIPIPRAZOLE
     Indication: SCHIZOPHRENIA
     Dosage: 5MG:2012 TO 26JUN13  10MG:27JUN TO 31JUL2013  15MG:01AUG2013 TO ONG
     Route: 048
     Dates: start: 20130801
  3. RISPERIDONE. [Suspect]
     Active Substance: RISPERIDONE
     Indication: SCHIZOPHRENIA
     Dosage: DOSE REDUCED,2012 TO 18JUN13: 2MG-0-3MG  19-26JUN13:4MG  27-07AUG:3MG  8-21AUG:2MG  22AUG TO ONG:1MG
     Route: 048
     Dates: start: 20130627

REACTIONS (1)
  - Tinnitus [Recovered/Resolved]

NARRATIVE: CASE EVENT DATE: 20130808
